FAERS Safety Report 8384908-0 (Version None)
Quarter: 2012Q2

REPORT INFORMATION
  Report Type: 
  Country: None (occurrence: None)
  Receive Date: 20120524
  Receipt Date: 20120509
  Transmission Date: 20120825
  Serious: No
  Sender: FDA-Public Use
  Company Number: US-ASTRAZENECA-2012SE27127

PATIENT
  Age: 60 Year
  Sex: Male

DRUGS (4)
  1. TENORMIN [Suspect]
     Route: 048
  2. NORVASC [Concomitant]
  3. ATACAND [Suspect]
     Route: 048
  4. CLONIDINE [Suspect]
     Route: 065

REACTIONS (5)
  - HEADACHE [None]
  - DRUG INEFFECTIVE [None]
  - CHEST DISCOMFORT [None]
  - INTENTIONAL DRUG MISUSE [None]
  - HYPERTENSION [None]
